FAERS Safety Report 4916715-2 (Version None)
Quarter: 2006Q1

REPORT INFORMATION
  Report Type: 
  Country: None (occurrence: None)
  Receive Date: 20060214
  Receipt Date: 20060206
  Transmission Date: 20060701
  Serious: No
  Sender: FDA-Public Use
  Company Number: DE200601001718

PATIENT
  Age: 57 Year
  Sex: Male

DRUGS (6)
  1. GEMZAR [Suspect]
     Indication: NON-SMALL CELL LUNG CANCER
     Dosage: 1800 MG, INTRAVENOUS : 2000 MG, INTRAVENOUS
     Route: 042
     Dates: start: 20051222
  2. GEMZAR [Suspect]
     Indication: NON-SMALL CELL LUNG CANCER
     Dosage: 1800 MG, INTRAVENOUS : 2000 MG, INTRAVENOUS
     Route: 042
     Dates: start: 20051227
  3. CARBOPLATIN [Concomitant]
  4. METOPROLOL [Concomitant]
  5. ASPIRIN [Concomitant]
  6. SIMVASTATIN [Concomitant]

REACTIONS (2)
  - MASTOIDITIS [None]
  - SCINTILLATING SCOTOMA [None]
